FAERS Safety Report 5235964-X (Version None)
Quarter: 2007Q1

REPORT INFORMATION
  Report Type: 
  Country: None (occurrence: None)
  Receive Date: 20070212
  Receipt Date: 20070201
  Transmission Date: 20070707
  Serious: Yes (Hospitalization)
  Sender: FDA-Public Use
  Company Number: US-ROCHE-481147

PATIENT
  Age: 67 Year
  Sex: Male

DRUGS (18)
  1. CAPECITABINE [Suspect]
     Dosage: DAYS 1-14, AND IN THE MORNING OF DAY 15, EVERY 28 DAYS
     Route: 048
     Dates: start: 20060802, end: 20060904
  2. CAPECITABINE [Suspect]
     Dosage: DAYS 1-14, AND IN THE MORNING OF DAY 15, EVERY 28 DAYS
     Route: 048
     Dates: start: 20060215, end: 20060719
  3. CAPECITABINE [Suspect]
     Dosage: DAYS 1-14, AND IN THE MORNING OF DAY 15, EVERY 28 DAYS
     Route: 048
     Dates: start: 20060118, end: 20060201
  4. HYDROXYMETHYL ACYLFULVENE [Suspect]
     Dosage: ON DAYS 1 + 15 EVERY 28 DAYS
     Route: 042
     Dates: start: 20060802, end: 20060830
  5. HYDROXYMETHYL ACYLFULVENE [Suspect]
     Dosage: ON DAYS 1 + 15 EVERY 28 DAYS
     Route: 042
     Dates: start: 20060215, end: 20060719
  6. HYDROXYMETHYL ACYLFULVENE [Suspect]
     Dosage: ON DAYS 1 + 15 EVERY 28 DAYS
     Route: 042
     Dates: start: 20060118, end: 20060201
  7. PREDNISONE [Suspect]
     Route: 048
  8. ACETAMINOPHEN W/ CODEINE TAB [Concomitant]
     Indication: PAIN
     Dosage: PRN
     Route: 048
  9. POTASSIUM CHLORIDE [Concomitant]
     Route: 048
  10. DEXAMETHASONE [Concomitant]
     Indication: DRUG HYPERSENSITIVITY
     Route: 048
  11. ASPIRIN [Concomitant]
     Dosage: INDICATION: HEART HEALTH
     Route: 048
  12. ONDANSETRON [Concomitant]
     Indication: ANTIEMETIC SUPPORTIVE CARE
     Route: 048
  13. OMEPRAZOLE [Concomitant]
     Route: 048
  14. LOPERAMIDE HYDROCHLORIDE [Concomitant]
     Route: 048
  15. FUROSEMIDE [Concomitant]
     Indication: DIURETIC EFFECT
     Route: 048
  16. AMLODIPINE [Concomitant]
     Indication: HYPERTENSION
     Route: 048
  17. NORTRIPTYLINE HCL [Concomitant]
     Indication: SLEEP DISORDER
     Dosage: AT BEDTIME
     Route: 048
  18. GOSERELIN [Concomitant]
     Route: 058

REACTIONS (2)
  - ATRIAL FIBRILLATION [None]
  - CONVULSION [None]
